FAERS Safety Report 4831813-X (Version None)
Quarter: 2005Q4

REPORT INFORMATION
  Report Type: 
  Country: None (occurrence: None)
  Receive Date: 20051110
  Receipt Date: 20051027
  Transmission Date: 20060501
  Serious: Yes (Other)
  Sender: FDA-Public Use
  Company Number: SEWYE085725OCT05

PATIENT
  Age: 12 Year
  Sex: Male

DRUGS (1)
  1. REFACTO [Suspect]
     Indication: FACTOR VIII DEFICIENCY
     Route: 042

REACTIONS (4)
  - COAGULATION FACTOR VIII LEVEL DECREASED [None]
  - FACTOR VIII INHIBITION [None]
  - HAEMATOMA [None]
  - THERAPY NON-RESPONDER [None]
